FAERS Safety Report 25715539 (Version 1)
Quarter: 2025Q3

REPORT INFORMATION
  Report Type: Spontaneous
  Country: EU (occurrence: EU)
  Receive Date: 20250822
  Receipt Date: 20250822
  Transmission Date: 20251021
  Serious: Yes (Other)
  Sender: JOHNSON AND JOHNSON
  Company Number: EU-JNJFOC-20250827066

PATIENT
  Sex: Female
  Weight: 81 kg

DRUGS (2)
  1. RILPIVIRINE [Suspect]
     Active Substance: RILPIVIRINE
     Indication: HIV infection
     Dates: start: 202307
  2. CABOTEGRAVIR [Suspect]
     Active Substance: CABOTEGRAVIR
     Indication: HIV infection
     Route: 065
     Dates: start: 202307

REACTIONS (11)
  - Diarrhoea haemorrhagic [Unknown]
  - Injection site pain [Unknown]
  - Fatigue [Unknown]
  - Fungal infection [Unknown]
  - Dysgeusia [Unknown]
  - Gastritis [Unknown]
  - Weight decreased [Unknown]
  - Hepatitis A [Unknown]
  - Skin papilloma [Unknown]
  - Anxiety [Unknown]
  - Poor quality sleep [Unknown]
